FAERS Safety Report 8890011 (Version 1)
Quarter: 2012Q4

REPORT INFORMATION
  Report Type: 
  Country: US (occurrence: US)
  Receive Date: 20121107
  Receipt Date: 20121107
  Transmission Date: 20130627
  Serious: No
  Sender: FDA-Public Use
  Company Number: US-PFIZER INC-2012269285

PATIENT
  Age: 70 Year
  Sex: Female
  Weight: 54.42 kg

DRUGS (4)
  1. PREMARIN [Suspect]
     Indication: VULVOVAGINAL ATROPHY
     Dosage: UNK, 1x/day
     Route: 067
     Dates: start: 2010, end: 2010
  2. PREMARIN [Suspect]
     Dosage: UNK, three times in a week
     Route: 067
     Dates: start: 2010
  3. PREMARIN [Suspect]
     Dosage: UNK, three times in a week
     Route: 067
     Dates: start: 2011
  4. NORVASC [Concomitant]
     Indication: HYPERTENSION
     Dosage: UNK
     Dates: start: 2002

REACTIONS (1)
  - Fungal infection [Recovered/Resolved]
